FAERS Safety Report 10844601 (Version 1)
Quarter: 2015Q1

REPORT INFORMATION
  Report Type: Report from Study
  Country: US (occurrence: US)
  Receive Date: 20150220
  Receipt Date: 20150220
  Transmission Date: 20150721
  Serious: Yes (Other)
  Sender: FDA-Public Use
  Company Number: US-ABBVIE-14P-163-1294931-00

PATIENT
  Sex: Female

DRUGS (5)
  1. IMURAN [Suspect]
     Active Substance: AZATHIOPRINE
     Indication: PRODUCT USED FOR UNKNOWN INDICATION
     Route: 065
     Dates: end: 201409
  2. HUMIRA [Suspect]
     Active Substance: ADALIMUMAB
     Indication: CROHN^S DISEASE
     Dosage: LOADING DOSE
     Route: 065
     Dates: start: 20140828, end: 20140828
  3. OMEPRAZOLE. [Concomitant]
     Active Substance: OMEPRAZOLE
     Indication: GASTRITIS
  4. SERTRALINE [Concomitant]
     Active Substance: SERTRALINE HYDROCHLORIDE
     Indication: ANXIETY
  5. HUMIRA [Suspect]
     Active Substance: ADALIMUMAB
     Dosage: LOADING DOSE
     Route: 065
     Dates: start: 20141006, end: 20141006

REACTIONS (10)
  - Pain [Unknown]
  - Swelling [Unknown]
  - Ear infection [Not Recovered/Not Resolved]
  - Abdominal distension [Unknown]
  - Abasia [Unknown]
  - Sinus congestion [Not Recovered/Not Resolved]
  - Middle insomnia [Unknown]
  - Abdominal pain [Not Recovered/Not Resolved]
  - Bronchitis [Unknown]
  - Pharyngotonsillitis [Unknown]
